FAERS Safety Report 16618153 (Version 3)
Quarter: 2020Q3

REPORT INFORMATION
  Report Type: Spontaneous
  Country: US (occurrence: US)
  Receive Date: 20190723
  Receipt Date: 20200817
  Transmission Date: 20201102
  Serious: Yes (Other)
  Sender: FDA-Public Use
  Company Number: US-GILEAD-2019-0419395

PATIENT
  Age: 59 Year
  Sex: Male

DRUGS (3)
  1. TRUVADA [Suspect]
     Active Substance: EMTRICITABINE\TENOFOVIR DISOPROXIL FUMARATE
     Indication: HIV INFECTION
     Dosage: UNK
     Route: 048
     Dates: start: 2006, end: 2017
  2. BIKTARVY [Concomitant]
     Active Substance: BICTEGRAVIR SODIUM\EMTRICITABINE\TENOFOVIR ALAFENAMIDE FUMARATE
  3. DESCOVY [Concomitant]
     Active Substance: EMTRICITABINE\TENOFOVIR ALAFENAMIDE FUMARATE

REACTIONS (13)
  - Multiple fractures [Not Recovered/Not Resolved]
  - Renal disorder [Unknown]
  - Pain [Unknown]
  - Osteoporosis [Not Recovered/Not Resolved]
  - Paralysis [Not Recovered/Not Resolved]
  - Bone loss [Unknown]
  - Kidney infection [Not Recovered/Not Resolved]
  - Bone density decreased [Unknown]
  - Tremor [Not Recovered/Not Resolved]
  - Osteonecrosis [Unknown]
  - Spinal cord infection [Not Recovered/Not Resolved]
  - Urinary tract infection [Not Recovered/Not Resolved]
  - Emotional distress [Unknown]

NARRATIVE: CASE EVENT DATE: 201702
